FAERS Safety Report 18387007 (Version 7)
Quarter: 2021Q1

REPORT INFORMATION
  Report Type: Report from Study
  Country: CO (occurrence: CO)
  Receive Date: 20201015
  Receipt Date: 20210308
  Transmission Date: 20210419
  Serious: Yes (Other)
  Sender: FDA-Public Use
  Company Number: NVSC2020CO260123

PATIENT
  Age: 63 Year
  Sex: Female
  Weight: 88 kg

DRUGS (7)
  1. KISQALI [Suspect]
     Active Substance: RIBOCICLIB
     Indication: BREAST CANCER METASTATIC
     Dosage: 600 MG, Q24H
     Route: 048
     Dates: start: 201803, end: 202004
  2. PROPRANOLOL [Concomitant]
     Active Substance: PROPRANOLOL HYDROCHLORIDE
     Dosage: 50 MG, Q24H (APPROXIMATELY 6 YEARS AGO)
     Route: 048
  3. FEMARA [Suspect]
     Active Substance: LETROZOLE
     Indication: BREAST CANCER
     Dosage: 2.5 MG, Q24H
     Route: 048
     Dates: start: 201803
  4. PROPRANOLOL [Concomitant]
     Active Substance: PROPRANOLOL HYDROCHLORIDE
     Indication: HYPERTENSION
     Dosage: 50 MG, Q12H (STARTED 6 YEARS AGO)
     Route: 048
  5. ATORVASTATIN [Suspect]
     Active Substance: ATORVASTATIN
     Indication: BLOOD CHOLESTEROL
     Dosage: 40 MG, QD
     Route: 048
     Dates: start: 20200818
  6. METOPROLOL. [Suspect]
     Active Substance: METOPROLOL
     Indication: HYPERTENSION
     Dosage: 50 MG, Q12H
     Route: 048
  7. PROPRANOLOL [Concomitant]
     Active Substance: PROPRANOLOL HYDROCHLORIDE
     Dosage: 50 MG, QD (APPROXIMAELY 6 YEARS AGO)
     Route: 048
     Dates: end: 202008

REACTIONS (18)
  - Metastases to thorax [Unknown]
  - Hypersensitivity [Recovered/Resolved]
  - Red blood cell count abnormal [Unknown]
  - Mean platelet volume abnormal [Unknown]
  - Lipomatosis [Unknown]
  - Arthritis [Unknown]
  - Bone pain [Unknown]
  - Metastases to bone [Unknown]
  - Decreased immune responsiveness [Recovered/Resolved]
  - Blood bilirubin abnormal [Unknown]
  - Red cell distribution width abnormal [Unknown]
  - Pneumonitis [Unknown]
  - Haematocrit abnormal [Unknown]
  - Blood creatinine abnormal [Unknown]
  - Musculoskeletal chest pain [Recovered/Resolved]
  - Central obesity [Unknown]
  - Pruritus [Recovered/Resolved]
  - Rash [Recovered/Resolved]

NARRATIVE: CASE EVENT DATE: 202001
